FAERS Safety Report 15197068 (Version 1)
Quarter: 2018Q3

REPORT INFORMATION
  Report Type: Spontaneous
  Country: FR (occurrence: FR)
  Receive Date: 20180725
  Receipt Date: 20180725
  Transmission Date: 20181010
  Serious: Yes (Life-Threatening, Other)
  Sender: FDA-Public Use
  Company Number: FR-JNJFOC-20180727476

PATIENT
  Age: 61 Year
  Sex: Female

DRUGS (5)
  1. ETOPOSIDE. [Suspect]
     Active Substance: ETOPOSIDE
     Indication: SOFT TISSUE SARCOMA
     Dosage: DAY 1, 2 AND 3
     Route: 065
  2. IFOSFAMIDE. [Suspect]
     Active Substance: IFOSFAMIDE
     Indication: SOFT TISSUE SARCOMA
     Dosage: DAY 1 AND 2; DAY 21 AND 22 (2.5G/M2)
     Route: 065
  3. DOXORUBICIN HYDROCHLORIDE. [Suspect]
     Active Substance: DOXORUBICIN HYDROCHLORIDE
     Indication: SOFT TISSUE SARCOMA
     Dosage: DAY 1 AND 2;DAY 21 AND 22
     Route: 065
  4. CISPLATIN. [Suspect]
     Active Substance: CISPLATIN
     Indication: SOFT TISSUE SARCOMA
     Dosage: DAY 1, 2 AND 3
     Route: 065
  5. CISPLATIN. [Suspect]
     Active Substance: CISPLATIN
     Indication: SOFT TISSUE SARCOMA
     Dosage: DAY 1 AND 2
     Route: 065

REACTIONS (4)
  - Neutropenia [Unknown]
  - Off label use [Unknown]
  - Anaemia [Unknown]
  - Product use in unapproved indication [Unknown]
